FAERS Safety Report 11850370 (Version 1)
Quarter: 2015Q4

REPORT INFORMATION
  Report Type: Spontaneous
  Country: US (occurrence: US)
  Receive Date: 20151218
  Receipt Date: 20151218
  Transmission Date: 20160305
  Serious: No
  Sender: FDA-Public Use
  Company Number: US-JNJFOC-20151120815

PATIENT
  Age: 70 Year
  Sex: Female
  Weight: 54.43 kg

DRUGS (6)
  1. TYLENOL EXTRA STRENGTH [Suspect]
     Active Substance: ACETAMINOPHEN
     Indication: BACK PAIN
     Dosage: 1/2-1 CAPLET EVERY DAY
     Route: 048
  2. TYLENOL EXTRA STRENGTH [Suspect]
     Active Substance: ACETAMINOPHEN
     Indication: BACK PAIN
     Dosage: 1/2-1 CAPLET EVERY DAY
     Route: 048
     Dates: start: 20151118
  3. OTHER DERMATOLOGICAL PREPARATIONS [Concomitant]
     Indication: ROSACEA
     Route: 065
  4. OTHER THERAPEUTIC PRODUCTS [Concomitant]
     Active Substance: UNSPECIFIED INGREDIENT
     Indication: ROSACEA
     Route: 065
  5. ORACEA [Concomitant]
     Active Substance: DOXYCYCLINE
     Indication: VASCULAR OCCLUSION
     Route: 065
  6. METROGEL [Concomitant]
     Active Substance: METRONIDAZOLE
     Indication: VASCULAR OCCLUSION
     Route: 065

REACTIONS (2)
  - Erythema [Recovered/Resolved]
  - Inappropriate schedule of drug administration [Recovered/Resolved]

NARRATIVE: CASE EVENT DATE: 20151115
